FAERS Safety Report 20462467 (Version 4)
Quarter: 2022Q1

REPORT INFORMATION
  Report Type: Spontaneous
  Country: US (occurrence: US)
  Receive Date: 20220211
  Receipt Date: 20220223
  Transmission Date: 20220424
  Serious: Yes (Hospitalization)
  Sender: FDA-Public Use
  Company Number: US-BIOMARINAP-US-2022-141352

PATIENT
  Age: 15 Year
  Sex: Female

DRUGS (2)
  1. NAGLAZYME [Suspect]
     Active Substance: GALSULFASE
     Indication: Mucopolysaccharidosis VI
     Dosage: 25 MILLIGRAM, QW
     Route: 042
     Dates: start: 202108
  2. NAGLAZYME [Suspect]
     Active Substance: GALSULFASE
     Dosage: 25 MILLIGRAM, QW
     Route: 042
     Dates: start: 2018

REACTIONS (6)
  - Bacterial infection [Unknown]
  - Blood culture positive [Unknown]
  - Swelling [Recovering/Resolving]
  - Device related infection [Recovering/Resolving]
  - Injection site bruising [Unknown]
  - Blister [Unknown]

NARRATIVE: CASE EVENT DATE: 20220203
